FAERS Safety Report 22223496 (Version 1)
Quarter: 2023Q2

REPORT INFORMATION
  Report Type: Spontaneous
  Country: US (occurrence: None)
  Receive Date: 20230417
  Receipt Date: 20230417
  Transmission Date: 20230722
  Serious: Yes (Hospitalization)
  Sender: FDA-Public Use
  Company Number: None

PATIENT
  Age: 69 Year
  Sex: Male

DRUGS (1)
  1. ABIRATERONE [Suspect]
     Active Substance: ABIRATERONE
     Dosage: 1000 MG DAILY PO
     Route: 048
     Dates: start: 20221201

REACTIONS (8)
  - Weight decreased [None]
  - Decreased appetite [None]
  - Taste disorder [None]
  - Vision blurred [None]
  - Hypoaesthesia [None]
  - Hypoaesthesia [None]
  - Paraesthesia [None]
  - Pyrexia [None]

NARRATIVE: CASE EVENT DATE: 20230101
